FAERS Safety Report 12670945 (Version 1)
Quarter: 2016Q3

REPORT INFORMATION
  Report Type: Spontaneous
  Country: US (occurrence: None)
  Receive Date: 20160819
  Receipt Date: 20160819
  Transmission Date: 20161109
  Serious: No
  Sender: FDA-Public Use
  Company Number: None

PATIENT
  Age: 55 Year
  Sex: Female

DRUGS (1)
  1. HARVONI [Suspect]
     Active Substance: LEDIPASVIR\SOFOSBUVIR
     Dosage: 90-400MG QD ORAL
     Route: 048
     Dates: start: 20160630

REACTIONS (3)
  - Fatigue [None]
  - Headache [None]
  - Ear discomfort [None]

NARRATIVE: CASE EVENT DATE: 20160630
